FAERS Safety Report 24825627 (Version 2)
Quarter: 2025Q1

REPORT INFORMATION
  Report Type: Spontaneous
  Country: CA (occurrence: CA)
  Receive Date: 20250109
  Receipt Date: 20250114
  Transmission Date: 20250409
  Serious: Yes (Other)
  Sender: PFIZER
  Company Number: CA-PFIZER INC-PV202500001933

PATIENT
  Age: 55 Year
  Sex: Female

DRUGS (2)
  1. BAZEDOXIFENE ACETATE\ESTROGENS, CONJUGATED [Suspect]
     Active Substance: BAZEDOXIFENE ACETATE\ESTROGENS, CONJUGATED
     Indication: Hormone replacement therapy
     Dosage: UNK, 1X/DAY
     Route: 048
     Dates: start: 202403, end: 20241103
  2. BAZEDOXIFENE ACETATE\ESTROGENS, CONJUGATED [Suspect]
     Active Substance: BAZEDOXIFENE ACETATE\ESTROGENS, CONJUGATED
     Indication: Breast mass

REACTIONS (11)
  - Suicidal ideation [Recovered/Resolved]
  - Tinnitus [Unknown]
  - Hot flush [Recovered/Resolved]
  - Depression [Recovered/Resolved]
  - Psychiatric symptom [Recovered/Resolved]
  - Chromaturia [Recovered/Resolved]
  - Vaginal haemorrhage [Recovered/Resolved]
  - Abdominal pain upper [Recovered/Resolved]
  - Muscle spasms [Recovered/Resolved]
  - Headache [Recovered/Resolved]
  - Hyperhidrosis [Recovered/Resolved]

NARRATIVE: CASE EVENT DATE: 20240101
